FAERS Safety Report 17054076 (Version 16)
Quarter: 2021Q2

REPORT INFORMATION
  Report Type: Spontaneous
  Country: US (occurrence: US)
  Receive Date: 20191120
  Receipt Date: 20210617
  Transmission Date: 20210716
  Serious: Yes (Other)
  Sender: FDA-Public Use
  Company Number: US-PFIZER INC-2019501750

PATIENT
  Age: 83 Year
  Sex: Male
  Weight: 78 kg

DRUGS (14)
  1. LEVOTHYROXINE. [Concomitant]
     Active Substance: LEVOTHYROXINE
     Dosage: 100 UG, 1X/DAY(TAKE 1 TABLET BY MOUTH ONCE DAILY IN THE MORNING)
     Route: 048
  2. HEPATITIS A [Concomitant]
     Dosage: UNK, SINGLE
     Dates: start: 20110405, end: 20110405
  3. LYRICA [Suspect]
     Active Substance: PREGABALIN
     Indication: PAIN
     Dosage: 200 MG, 2X/DAY
     Route: 048
  4. LYRICA [Suspect]
     Active Substance: PREGABALIN
     Indication: POLYNEUROPATHY
     Dosage: 200 MG, 2X/DAY
     Route: 048
     Dates: end: 201901
  5. TD (ADULT) [Concomitant]
     Indication: IMMUNISATION
     Dosage: UNK, SINGLE
     Dates: start: 20120712, end: 20120712
  6. TRAMADOL. [Concomitant]
     Active Substance: TRAMADOL
     Dosage: 50 MG, AS NEEDED (TAKE 1 TABLET(S) TWICE A DAY BY ORAL ROUTE AS NEEDED)
     Route: 048
     Dates: start: 20200618
  7. LYRICA [Suspect]
     Active Substance: PREGABALIN
     Indication: NEUROPATHY PERIPHERAL
     Dosage: 100 MG, 3X/DAY
  8. ASPIR 81 [Concomitant]
     Active Substance: ASPIRIN
     Dosage: 81 MG, 1X/DAY
     Route: 048
  9. VITAMIN B12 [Concomitant]
     Active Substance: CYANOCOBALAMIN
     Dosage: 1000 UG
  10. CYMBALTA [Concomitant]
     Active Substance: DULOXETINE HYDROCHLORIDE
     Dosage: 30 MG, 1X/DAY
     Route: 048
  11. FINASTERIDE. [Concomitant]
     Active Substance: FINASTERIDE
     Dosage: 5 MG, 1X/DAY
     Route: 048
  12. HEPATITIS A [Concomitant]
     Indication: IMMUNISATION
     Dosage: UNK, SINGLE
     Dates: start: 20100817, end: 20100817
  13. LYRICA [Suspect]
     Active Substance: PREGABALIN
     Indication: NEUROPATHY PERIPHERAL
     Dosage: 400 MG, 2X/DAY (TAKE 2 CAPSULE(S) TWICE A DAY)
     Route: 048
  14. VITAMIN D3 [Concomitant]
     Active Substance: CHOLECALCIFEROL
     Dosage: 10 UG, 2X/DAY(10 MCG (400 UNIT) CAPSULE)
     Route: 048

REACTIONS (24)
  - Cerebrovascular accident [Unknown]
  - Hypoacusis [Unknown]
  - Type V hyperlipidaemia [Unknown]
  - Drug ineffective [Unknown]
  - Overdose [Unknown]
  - Tooth disorder [Unknown]
  - Urinary incontinence [Unknown]
  - Cardiac murmur [Unknown]
  - Carotid artery disease [Unknown]
  - Hypothyroidism [Unknown]
  - Colitis ulcerative [Unknown]
  - Mitral valve incompetence [Unknown]
  - Malaise [Unknown]
  - Visual impairment [Unknown]
  - Osteoarthritis [Unknown]
  - Essential hypertension [Unknown]
  - Vision blurred [Not Recovered/Not Resolved]
  - Major depression [Not Recovered/Not Resolved]
  - Gait disturbance [Not Recovered/Not Resolved]
  - Stress [Unknown]
  - Overweight [Not Recovered/Not Resolved]
  - Benign prostatic hyperplasia [Unknown]
  - Vitamin D deficiency [Unknown]
  - Withdrawal syndrome [Unknown]

NARRATIVE: CASE EVENT DATE: 20180808
